FAERS Safety Report 9112977 (Version 1)
Quarter: 2013Q1

REPORT INFORMATION
  Report Type: Report from Study
  Country: PL (occurrence: PL)
  Receive Date: 20130211
  Receipt Date: 20130211
  Transmission Date: 20140127
  Serious: Yes (Other)
  Sender: FDA-Public Use
  Company Number: PL-ROCHE-1186399

PATIENT
  Age: 47 Year
  Sex: Female
  Weight: 55 kg

DRUGS (2)
  1. HERCEPTIN [Suspect]
     Indication: BREAST CANCER
     Route: 042
     Dates: start: 200505, end: 20101117
  2. XELODA [Suspect]
     Indication: NEOPLASM MALIGNANT
     Route: 065

REACTIONS (8)
  - Pain in extremity [Recovered/Resolved]
  - Axillary vein thrombosis [Recovered/Resolved]
  - Complex regional pain syndrome [Unknown]
  - Metastases to lung [Unknown]
  - Musculoskeletal pain [Unknown]
  - Pyrexia [Recovered/Resolved]
  - Asthenia [Unknown]
  - Oedema peripheral [Unknown]
